FAERS Safety Report 10267152 (Version 1)
Quarter: 2014Q2

REPORT INFORMATION
  Report Type: Spontaneous
  Country: US (occurrence: US)
  Receive Date: 20140630
  Receipt Date: 20140630
  Transmission Date: 20141212
  Serious: No
  Sender: FDA-Public Use
  Company Number: US-JNJFOC-20140518194

PATIENT
  Sex: Female

DRUGS (2)
  1. HALDOL DECANOATE [Suspect]
     Indication: PRODUCT USED FOR UNKNOWN INDICATION
     Route: 030
     Dates: start: 1994
  2. INVEGA SUSTENNA [Suspect]
     Indication: PRODUCT USED FOR UNKNOWN INDICATION
     Route: 030

REACTIONS (1)
  - Adverse event [Unknown]
